FAERS Safety Report 6456907-7 (Version None)
Quarter: 2009Q4

REPORT INFORMATION
  Report Type: 
  Country: None (occurrence: None)
  Receive Date: 20091125
  Receipt Date: 20091110
  Transmission Date: 20100525
  Serious: Yes (Hospitalization)
  Sender: FDA-Public Use
  Company Number: FR-B.I. PHARMACEUTICALS,INC./RIDGEFIELD-2009-BP-10746YA

PATIENT
  Sex: Male

DRUGS (3)
  1. TAMSULOSIN HCL [Suspect]
     Indication: BENIGN PROSTATIC HYPERPLASIA
     Route: 048
     Dates: start: 20081101, end: 20090401
  2. LERCANIDIPINE [Concomitant]
     Indication: HYPERTENSION
     Route: 048
     Dates: end: 20090801
  3. LASIX [Concomitant]
     Indication: HYPERTENSION
     Route: 048
     Dates: end: 20090901

REACTIONS (5)
  - BLOOD PRESSURE FLUCTUATION [None]
  - DIZZINESS [None]
  - MALAISE [None]
  - ORTHOSTATIC HYPOTENSION [None]
  - SLEEP APNOEA SYNDROME [None]
